FAERS Safety Report 24785441 (Version 1)
Quarter: 2024Q4

REPORT INFORMATION
  Report Type: Spontaneous
  Country: US (occurrence: US)
  Receive Date: 20241228
  Receipt Date: 20241228
  Transmission Date: 20250115
  Serious: No
  Sender: UNITED THERAPEUTICS
  Company Number: US-UNITED THERAPEUTICS-UNT-2024-036721

PATIENT
  Sex: Female
  Weight: 55.782 kg

DRUGS (32)
  1. TYVASO DPI [Suspect]
     Active Substance: TREPROSTINIL
     Indication: Pulmonary arterial hypertension
     Dosage: 64 ?G, QID
  2. TYVASO DPI [Suspect]
     Active Substance: TREPROSTINIL
     Dosage: UNK
  3. TYVASO DPI [Suspect]
     Active Substance: TREPROSTINIL
     Indication: Pulmonary arterial hypertension
     Dosage: UNK
  4. VELETRI [Suspect]
     Active Substance: EPOPROSTENOL
     Indication: Pulmonary arterial hypertension
     Dosage: 0.003 ?G/KG (PER MINUTE)
  5. VELETRI [Suspect]
     Active Substance: EPOPROSTENOL
     Dosage: 0.006 ?G/KG (PER MINUTE)
  6. VELETRI [Suspect]
     Active Substance: EPOPROSTENOL
     Dosage: UNK
  7. CYANOCOBALAMIN\DEXPANTHENOL\NIACINAMIDE\PYRIDOXINE HYDROCHLORIDE\RIBOF [Concomitant]
     Active Substance: CYANOCOBALAMIN\DEXPANTHENOL\NIACINAMIDE\PYRIDOXINE HYDROCHLORIDE\RIBOFLAVIN 5^-PHOSPHATE SODIUM\THIA
     Indication: Product used for unknown indication
     Dosage: UNK
  8. NITRO-BID [Concomitant]
     Active Substance: NITROGLYCERIN
     Indication: Product used for unknown indication
     Dosage: UNK
  9. CEPHALEXIN [Concomitant]
     Active Substance: CEPHALEXIN
     Indication: Product used for unknown indication
     Dosage: UNK
  10. ADEMPAS [Concomitant]
     Active Substance: RIOCIGUAT
     Indication: Product used for unknown indication
     Dosage: UNK
  11. NYSTATIN [Concomitant]
     Active Substance: NYSTATIN
     Indication: Product used for unknown indication
     Dosage: UNK
  12. AMOXICILLIN [Concomitant]
     Active Substance: AMOXICILLIN
     Indication: Product used for unknown indication
     Dosage: UNK
  13. LASIX [Concomitant]
     Active Substance: FUROSEMIDE
     Indication: Product used for unknown indication
     Dosage: UNK
  14. PROTONIX [Concomitant]
     Active Substance: PANTOPRAZOLE SODIUM
     Indication: Product used for unknown indication
     Dosage: UNK
  15. ROPINIROLE HYDROCHLORIDE [Concomitant]
     Active Substance: ROPINIROLE HYDROCHLORIDE
     Indication: Product used for unknown indication
     Dosage: UNK
  16. WARFARIN SODIUM [Concomitant]
     Active Substance: WARFARIN SODIUM
     Indication: Product used for unknown indication
     Dosage: UNK
  17. PREMARIN [Concomitant]
     Active Substance: ESTROGENS, CONJUGATED
     Indication: Product used for unknown indication
     Dosage: UNK
  18. CRANBERRY [Concomitant]
     Active Substance: CRANBERRY
     Indication: Product used for unknown indication
     Dosage: UNK
  19. POTASSIUM CHLORIDE [Concomitant]
     Active Substance: POTASSIUM CHLORIDE
     Indication: Product used for unknown indication
     Dosage: UNK
  20. CALCIUM\CHOLECALCIFEROL [Concomitant]
     Active Substance: CALCIUM\CHOLECALCIFEROL
     Indication: Product used for unknown indication
     Dosage: UNK
  21. TRAMADOL HCL [Concomitant]
     Active Substance: TRAMADOL HYDROCHLORIDE
     Indication: Product used for unknown indication
     Dosage: UNK
  22. VITAMINS [Concomitant]
     Active Substance: VITAMINS
     Indication: Product used for unknown indication
     Dosage: UNK
  23. OPSUMIT [Concomitant]
     Active Substance: MACITENTAN
     Indication: Pulmonary arterial hypertension
     Dosage: UNK
  24. DEMANNOSE [Concomitant]
     Active Substance: DEMANNOSE
     Indication: Product used for unknown indication
     Dosage: UNK
  25. VITAMIN D3 [Concomitant]
     Active Substance: CHOLECALCIFEROL
     Indication: Product used for unknown indication
     Dosage: UNK
  26. OXYGEN [Concomitant]
     Active Substance: OXYGEN
     Indication: Product used for unknown indication
     Dosage: 10 L, CONTINUING
  27. SYNTHROID [Concomitant]
     Active Substance: LEVOTHYROXINE SODIUM
     Indication: Product used for unknown indication
     Dosage: UNK
  28. ZYRTEC [Concomitant]
     Active Substance: CETIRIZINE HYDROCHLORIDE
     Indication: Product used for unknown indication
     Dosage: UNK
  29. FERROUS SULFATE [Concomitant]
     Active Substance: FERROUS SULFATE
     Indication: Product used for unknown indication
     Dosage: UNK
  30. ASPIRIN [Concomitant]
     Active Substance: ASPIRIN
     Indication: Product used for unknown indication
     Dosage: UNK
  31. SALINE [Concomitant]
     Active Substance: SODIUM CHLORIDE
     Indication: Product used for unknown indication
     Dosage: UNK
  32. CALCIUM CARBONATE;COLECALCIFEROL;SODIUM [Concomitant]
     Indication: Product used for unknown indication
     Dosage: UNK

REACTIONS (2)
  - Disease progression [Unknown]
  - Dry mouth [Unknown]
